FAERS Safety Report 14524609 (Version 1)
Quarter: 2018Q1

REPORT INFORMATION
  Report Type: Spontaneous
  Country: DE (occurrence: DE)
  Receive Date: 20180213
  Receipt Date: 20180213
  Transmission Date: 20180509
  Serious: Yes (Disabling)
  Sender: FDA-Public Use
  Company Number: DE-DEXPHARM-20180091

PATIENT
  Age: 49 Year

DRUGS (1)
  1. CHLORHEXAMED FORTE ALKOHOLFREI 0,2% MOUTH WASH [Suspect]
     Active Substance: CHLORHEXIDINE GLUCONATE
     Indication: TOOTH INJURY
     Dosage: 0.2 %, UNK

REACTIONS (4)
  - Hypoaesthesia [Not Recovered/Not Resolved]
  - Contraindicated product administered [Unknown]
  - Pain [Not Recovered/Not Resolved]
  - Swelling [Not Recovered/Not Resolved]
